FAERS Safety Report 6078315-3 (Version None)
Quarter: 2009Q1

REPORT INFORMATION
  Report Type: 
  Country: None (occurrence: None)
  Receive Date: 20090213
  Receipt Date: 20090206
  Transmission Date: 20090719
  Serious: Yes (Hospitalization, Other)
  Sender: FDA-Public Use
  Company Number: AU-MERCK-0902AUS00013

PATIENT
  Age: 75 Year
  Sex: Female

DRUGS (16)
  1. FOSAMAX [Suspect]
     Indication: OSTEOPOROSIS
     Route: 048
     Dates: start: 19980101
  2. FOSAMAX [Suspect]
     Route: 048
  3. ESTROGENS, CONJUGATED AND MEDROXYPROGESTERONE ACETATE [Concomitant]
     Route: 065
  4. ASPIRIN [Concomitant]
     Route: 065
  5. MELOXICAM [Concomitant]
     Route: 065
  6. ENALAPRIL MALEATE [Concomitant]
     Indication: BLOOD PRESSURE
     Route: 065
  7. RABEPRAZOLE SODIUM [Concomitant]
     Route: 065
  8. ACETAMINOPHEN [Concomitant]
     Route: 065
  9. DIAZEPAM [Concomitant]
     Route: 065
  10. CALCIUM (UNSPECIFIED) [Concomitant]
     Route: 065
  11. ALBUTEROL SULFATE [Concomitant]
     Route: 065
  12. FLUTICASONE PROPIONATE AND SALMETEROL XINAFOATE [Concomitant]
     Route: 065
  13. TIOTROPIUM BROMIDE [Concomitant]
     Route: 065
  14. OMEGA-3 MARINE TRIGLYCERIDES [Concomitant]
     Route: 065
  15. COD LIVER OIL [Concomitant]
     Route: 065
  16. FOSAMAX PLUS D [Suspect]
     Indication: OSTEOPOROSIS
     Route: 048

REACTIONS (3)
  - FEMUR FRACTURE [None]
  - NEPHROLITHIASIS [None]
  - SPINAL DISORDER [None]
